FAERS Safety Report 13099251 (Version 15)
Quarter: 2020Q1

REPORT INFORMATION
  Report Type: Report from Study
  Country: US (occurrence: US)
  Receive Date: 20170109
  Receipt Date: 20200115
  Transmission Date: 20200409
  Serious: Yes (Hospitalization, Other)
  Sender: FDA-Public Use
  Company Number: US-ACTELION-A-US2017-147930

PATIENT
  Age: 52 Year
  Sex: Female
  Weight: 79.37 kg

DRUGS (11)
  1. ASPIRIN. [Concomitant]
     Active Substance: ASPIRIN
     Indication: PROPHYLAXIS
     Dosage: 325 MG, QD
     Route: 048
     Dates: start: 2006
  2. OXYGEN. [Concomitant]
     Active Substance: OXYGEN
     Dosage: 4 L, PRN
     Dates: start: 20161019
  3. MELOXICAM. [Concomitant]
     Active Substance: MELOXICAM
     Indication: PAIN
     Dosage: 7.5 MG, BID
     Dates: start: 2006
  4. COUMADIN [Concomitant]
     Active Substance: WARFARIN SODIUM
     Indication: PULMONARY ARTERIAL HYPERTENSION
     Dosage: 5 MG, QD
     Route: 048
     Dates: start: 20161110
  5. SYMBICORT [Concomitant]
     Active Substance: BUDESONIDE\FORMOTEROL FUMARATE DIHYDRATE
     Indication: CHRONIC OBSTRUCTIVE PULMONARY DISEASE
     Dosage: 2 PUFFS, 160 MG, BID
     Dates: start: 20161119
  6. REMODULIN [Concomitant]
     Active Substance: TREPROSTINIL
     Dosage: UNK
     Dates: start: 20170120
  7. FUROSEMIDE. [Concomitant]
     Active Substance: FUROSEMIDE
     Indication: PROPHYLAXIS
     Dosage: 20 MG, QD
     Dates: start: 20151222
  8. OPSUMIT [Suspect]
     Active Substance: MACITENTAN
     Indication: PULMONARY ARTERIAL HYPERTENSION
     Dosage: 10 MG, QD
     Route: 048
     Dates: start: 20161103
  9. COREG [Concomitant]
     Active Substance: CARVEDILOL
     Dosage: 3.125 MG, BID
     Route: 048
     Dates: start: 20161221
  10. REVATIO [Concomitant]
     Active Substance: SILDENAFIL CITRATE
     Indication: PULMONARY ARTERIAL HYPERTENSION
     Dosage: 20 MG, TID
     Route: 048
     Dates: start: 20161120
  11. PROTONIX [Concomitant]
     Active Substance: PANTOPRAZOLE SODIUM
     Dosage: 40 MG, BID
     Dates: start: 20161221

REACTIONS (32)
  - Pulmonary hypertension [Unknown]
  - Malaise [Unknown]
  - Skin irritation [Unknown]
  - Nasopharyngitis [Unknown]
  - Rhinorrhoea [Unknown]
  - Heart rate increased [Unknown]
  - Gastrointestinal haemorrhage [Recovering/Resolving]
  - Arthralgia [Unknown]
  - Oxygen therapy [Unknown]
  - Urticaria [Unknown]
  - Rash [Unknown]
  - Eye disorder [Unknown]
  - Headache [Unknown]
  - Melaena [Recovered/Resolved]
  - Visual impairment [Unknown]
  - Catheter site erythema [Unknown]
  - Gastric ulcer [Recovered/Resolved]
  - Syncope [Unknown]
  - Abnormal sensation in eye [Unknown]
  - Catheter site pain [Unknown]
  - Anaemia [Recovered/Resolved]
  - Dyspnoea [Unknown]
  - Flushing [Unknown]
  - Cardiac failure high output [Unknown]
  - Transfusion [Unknown]
  - Duodenal ulcer [Recovered/Resolved]
  - Catheter site infection [Unknown]
  - Cough [Unknown]
  - Respiratory tract congestion [Unknown]
  - Haemoglobin decreased [Recovering/Resolving]
  - Diarrhoea [Unknown]
  - Catheter site nodule [Unknown]

NARRATIVE: CASE EVENT DATE: 20161221
